FAERS Safety Report 16973689 (Version 1)
Quarter: 2019Q4

REPORT INFORMATION
  Report Type: Report from Study
  Country: HK (occurrence: HK)
  Receive Date: 20191030
  Receipt Date: 20191030
  Transmission Date: 20200122
  Serious: Yes (Hospitalization)
  Sender: FDA-Public Use
  Company Number: HK-ROCHE-2448028

PATIENT
  Age: 60 Year
  Sex: Male

DRUGS (4)
  1. BEVACIZUMAB. [Suspect]
     Active Substance: BEVACIZUMAB
     Indication: NON-SMALL CELL LUNG CANCER METASTATIC
     Dosage: LAST DOSE OF BEVACIZUMAB PRIOR THE ADVERSE EVENTS WAS 30/AUG/2019
     Route: 042
     Dates: start: 20190315, end: 20191016
  2. CARBOPLATIN. [Suspect]
     Active Substance: CARBOPLATIN
     Indication: NON-SMALL CELL LUNG CANCER METASTATIC
     Route: 065
  3. ATEZOLIZUMAB. [Suspect]
     Active Substance: ATEZOLIZUMAB
     Indication: NON-SMALL CELL LUNG CANCER METASTATIC
     Dosage: LAST DOSE OF ATEZOLIZUMAB PRIOR THE ADVERSE EVENTS WAS 30/AUG/2019
     Route: 042
     Dates: start: 20190315, end: 20191016
  4. PEMETREXED. [Suspect]
     Active Substance: PEMETREXED
     Indication: NON-SMALL CELL LUNG CANCER METASTATIC
     Route: 065

REACTIONS (8)
  - Diabetes insipidus [Unknown]
  - Metastases to meninges [Unknown]
  - Neuropathy peripheral [Unknown]
  - Fall [Unknown]
  - Asthenia [Unknown]
  - Cranial nerve palsies multiple [Unknown]
  - Dysphagia [Unknown]
  - Neurological decompensation [Unknown]

NARRATIVE: CASE EVENT DATE: 20190917
